FAERS Safety Report 9665519 (Version 1)
Quarter: 2013Q4

REPORT INFORMATION
  Report Type: Spontaneous
  Country: US (occurrence: US)
  Receive Date: 20131104
  Receipt Date: 20131104
  Transmission Date: 20140711
  Serious: No
  Sender: FDA-Public Use
  Company Number: US-PFIZER INC-2013311204

PATIENT
  Age: 71 Year
  Sex: Female
  Weight: 89.8 kg

DRUGS (8)
  1. XELJANZ [Suspect]
     Indication: RHEUMATOID ARTHRITIS
     Dosage: 5MG (1 TABLET) TWICE A DAY
     Route: 048
     Dates: start: 201306, end: 201307
  2. PREDNISONE [Concomitant]
     Dosage: UNK
  3. LEVOTHYROXINE [Concomitant]
     Dosage: UNK
  4. MEDROL [Concomitant]
     Dosage: UNK
  5. FLUOROMETHOLONE [Concomitant]
     Dosage: UNK
  6. METHYLPREDNISOLONE [Concomitant]
     Dosage: UNK
  7. LOSARTAN [Concomitant]
     Dosage: UNK
  8. HYDROCHLOROTHIAZIDE [Concomitant]
     Dosage: UNK

REACTIONS (1)
  - Abdominal pain upper [Recovered/Resolved]
